FAERS Safety Report 18487364 (Version 2)
Quarter: 2020Q4

REPORT INFORMATION
  Report Type: Spontaneous
  Country: CA (occurrence: CA)
  Receive Date: 20201110
  Receipt Date: 20201201
  Transmission Date: 20210114
  Serious: Yes (Hospitalization)
  Sender: FDA-Public Use
  Company Number: CA-TEVA-2020-CA-1846370

PATIENT
  Age: 48 Year
  Sex: Female
  Weight: 102 kg

DRUGS (4)
  1. NALOXONE [Suspect]
     Active Substance: NALOXONE
     Indication: VASOPLEGIA SYNDROME
     Dosage: 200MICROG ALIQUOTS EVERY THREE TO FIVE MINUTES TO A TOTAL DOSE OF 1.6MG FOR VASOPLEGIA; TOTAL CUM...
     Route: 041
  2. NALOXONE [Suspect]
     Active Substance: NALOXONE
     Indication: SHOCK
  3. AMLODIPINE [Suspect]
     Active Substance: AMLODIPINE BESYLATE
     Indication: OVERDOSE
     Dosage: 252 MILLIGRAM DAILY;
     Route: 065
  4. PERINDOPRIL [Suspect]
     Active Substance: PERINDOPRIL
     Indication: OVERDOSE
     Route: 048

REACTIONS (9)
  - Overdose [Recovered/Resolved]
  - Insulin resistance [Recovering/Resolving]
  - Off label use [Recovered/Resolved]
  - Shock [Recovered/Resolved]
  - Rebound effect [Recovered/Resolved]
  - Toxicity to various agents [Recovered/Resolved]
  - Hypoxia [Recovered/Resolved]
  - Vasoplegia syndrome [Recovered/Resolved]
  - Hypotension [Recovered/Resolved]
